FAERS Safety Report 6637344-9 (Version None)
Quarter: 2010Q1

REPORT INFORMATION
  Report Type: 
  Country: None (occurrence: None)
  Receive Date: 20100311
  Receipt Date: 20100224
  Transmission Date: 20100710
  Serious: Yes (Other)
  Sender: FDA-Public Use
  Company Number: 008235

PATIENT
  Sex: Female

DRUGS (2)
  1. LEVETIRACETAM [Suspect]
     Indication: EPILEPSY
     Dosage: (1500 MG, FIRST AND SECOND TRIMESTER), (2000 MG, THIRD TRIMESTER)
  2. LAMOTRIGINE [Suspect]
     Indication: EPILEPSY
     Dosage: (200 MG, DURING FIRST TRIMESTER), (300 MG, DURING THE SECOND AND THIRD TRIMESTER)

REACTIONS (3)
  - ANTICONVULSANT DRUG LEVEL DECREASED [None]
  - COMPLEX PARTIAL SEIZURES [None]
  - DRUG EXPOSURE DURING PREGNANCY [None]
